FAERS Safety Report 9560924 (Version 1)
Quarter: 2013Q3

REPORT INFORMATION
  Report Type: Spontaneous
  Country: ES (occurrence: ES)
  Receive Date: 20130927
  Receipt Date: 20130927
  Transmission Date: 20140515
  Serious: Yes (Other)
  Sender: FDA-Public Use
  Company Number: ES-ROCHE-1280362

PATIENT
  Age: 60 Year
  Sex: Male
  Weight: 65 kg

DRUGS (8)
  1. PEGASYS [Suspect]
     Indication: HEPATITIS C
     Route: 042
     Dates: start: 20120527, end: 20120925
  2. PEGASYS [Suspect]
     Route: 042
     Dates: end: 201210
  3. RIBAVIRIN [Suspect]
     Indication: HEPATITIS C
     Route: 048
     Dates: start: 20120527, end: 20120925
  4. VICTRELIS [Suspect]
     Indication: HEPATITIS C
     Route: 065
     Dates: start: 20120527
  5. VICTRELIS [Suspect]
     Dosage: 12 DAILY
     Route: 048
     Dates: start: 20120620, end: 20120808
  6. VICTRELIS [Suspect]
     Route: 065
     Dates: end: 201210
  7. NEORECORMON [Concomitant]
     Route: 065
     Dates: start: 20120713, end: 20121010
  8. ACFOL [Concomitant]

REACTIONS (6)
  - Pancytopenia [Recovering/Resolving]
  - Therapeutic embolisation [Unknown]
  - Asthenia [Recovered/Resolved]
  - Fatigue [Unknown]
  - Dyspnoea [Unknown]
  - Anaemia [Recovered/Resolved]
